FAERS Safety Report 6854621-7 (Version None)
Quarter: 2010Q3

REPORT INFORMATION
  Report Type: 
  Country: None (occurrence: None)
  Receive Date: 20100717
  Receipt Date: 20080216
  Transmission Date: 20110219
  Serious: No
  Sender: FDA-Public Use
  Company Number: US-PFIZER INC-2007107064

PATIENT
  Sex: Female
  Weight: 49.9 kg

DRUGS (4)
  1. CHANTIX [Suspect]
     Indication: SMOKING CESSATION THERAPY
     Dates: start: 20070902
  2. WELLBUTRIN [Concomitant]
  3. LISINOPRIL [Concomitant]
     Indication: HYPOTENSION
  4. VITAMINS [Concomitant]

REACTIONS (5)
  - ABNORMAL DREAMS [None]
  - FATIGUE [None]
  - FRUSTRATION [None]
  - INSOMNIA [None]
  - MALAISE [None]
